FAERS Safety Report 10505776 (Version 1)
Quarter: 2014Q4

REPORT INFORMATION
  Report Type: Spontaneous
  Country: IT (occurrence: IT)
  Receive Date: 20141008
  Receipt Date: 20141008
  Transmission Date: 20150528
  Serious: Yes (Other)
  Sender: FDA-Public Use
  Company Number: PHHY2014IT130668

PATIENT
  Age: 32 Year
  Sex: Male

DRUGS (3)
  1. PAROXETINE [Suspect]
     Active Substance: PAROXETINE\PAROXETINE HYDROCHLORIDE
     Indication: AGORAPHOBIA
     Dosage: 5 MG, QD
  2. PAROXETINE [Suspect]
     Active Substance: PAROXETINE\PAROXETINE HYDROCHLORIDE
     Indication: PANIC DISORDER
     Dosage: 20 MG, QD
  3. PAROXETINE [Suspect]
     Active Substance: PAROXETINE\PAROXETINE HYDROCHLORIDE
     Dosage: 10 MG, QD

REACTIONS (15)
  - Headache [Unknown]
  - Asthenia [Recovering/Resolving]
  - Drug withdrawal syndrome [Recovering/Resolving]
  - Depersonalisation [Recovering/Resolving]
  - Anxiety [Not Recovered/Not Resolved]
  - Anticipatory anxiety [Unknown]
  - Agitation [Recovering/Resolving]
  - Nausea [Unknown]
  - Panic attack [Unknown]
  - Mood swings [Recovering/Resolving]
  - Increased appetite [Unknown]
  - Irritability [Unknown]
  - Nervousness [Unknown]
  - Insomnia [Recovering/Resolving]
  - Weight increased [Unknown]
